FAERS Safety Report 9219414 (Version 1)
Quarter: 2013Q2

REPORT INFORMATION
  Report Type: Spontaneous
  Country: US (occurrence: US)
  Receive Date: 20130409
  Receipt Date: 20130409
  Transmission Date: 20140414
  Serious: Yes (Hospitalization, Other)
  Sender: FDA-Public Use
  Company Number: US-PFIZER INC-2013109999

PATIENT
  Age: 49 Year
  Sex: Female
  Weight: 89.8 kg

DRUGS (1)
  1. DILANTIN-125 [Suspect]
     Indication: ANEURYSM
     Dosage: 100 MG, 2X/DAY
     Dates: start: 201301, end: 20130213

REACTIONS (2)
  - Hypersensitivity [Unknown]
  - Stevens-Johnson syndrome [Unknown]
